FAERS Safety Report 22186098 (Version 3)
Quarter: 2023Q2

REPORT INFORMATION
  Report Type: Spontaneous
  Country: JP (occurrence: JP)
  Receive Date: 20230407
  Receipt Date: 20230426
  Transmission Date: 20230722
  Serious: Yes (Other)
  Sender: FDA-Public Use
  Company Number: JP-GSKNCCC-Case-01703628_AE-69321

PATIENT

DRUGS (7)
  1. LAMICTAL [Suspect]
     Active Substance: LAMOTRIGINE
     Indication: Epilepsy
     Dosage: 25 MG, QOD
     Dates: start: 20220512, end: 20220525
  2. LAMICTAL [Suspect]
     Active Substance: LAMOTRIGINE
     Dosage: 25 MG, QD
     Dates: start: 20220526, end: 20220601
  3. LAMICTAL [Suspect]
     Active Substance: LAMOTRIGINE
     Dosage: 50 MG, QD
     Dates: start: 20220602, end: 20220615
  4. LAMICTAL [Suspect]
     Active Substance: LAMOTRIGINE
     Dosage: 100 MG, QD
     Dates: start: 20220616, end: 20220629
  5. LAMICTAL [Suspect]
     Active Substance: LAMOTRIGINE
     Dosage: 100 MG, BID
     Dates: start: 20220630, end: 20220713
  6. LAMICTAL [Suspect]
     Active Substance: LAMOTRIGINE
     Dosage: 300 MG/DAY, BID (2 TABLETS OF 100 MG IN MORNING, 1 TABLET OF 100 MG IN EVENING)
     Dates: start: 20220714, end: 20220720
  7. LAMICTAL [Suspect]
     Active Substance: LAMOTRIGINE
     Dosage: 200 MG, BID
     Route: 048
     Dates: start: 20220721

REACTIONS (5)
  - Haemorrhage [Recovered/Resolved]
  - Product package associated injury [Recovered/Resolved]
  - Product packaging difficult to open [Unknown]
  - Product use complaint [Unknown]
  - Drug titration error [Unknown]
